FAERS Safety Report 4293621-0 (Version None)
Quarter: 2004Q1

REPORT INFORMATION
  Report Type: 
  Country: None (occurrence: None)
  Receive Date: 20040210
  Receipt Date: 20040128
  Transmission Date: 20041129
  Serious: Yes (Hospitalization)
  Sender: FDA-Public Use
  Company Number: 04P-056-0249091-00

PATIENT
  Age: 74 Year
  Sex: Male

DRUGS (10)
  1. TRICOR [Suspect]
     Dosage: 200 MG, 1 IN 1 D, PER ORAL
     Route: 048
  2. FLUINDIONE [Suspect]
     Dosage: 20 MG
  3. GLYCERYL TRINITRATE [Suspect]
     Dosage: 5 MG, 1 IN 1 D
  4. PREDNISOLONE SODIUM SULFOBENZOATE [Suspect]
     Dosage: 20 MG, 1 IN 1 D
  5. FUROSEMIDE [Suspect]
     Dosage: 20 MG, 1 IN 1 D
  6. AMLODIPINE BESYLATE [Suspect]
     Dosage: 5 MG, 1 IN 1 D
  7. BROMAZEPAM [Concomitant]
  8. FLUOXETINE HCL [Concomitant]
  9. OMEPRAZOLE [Concomitant]
  10. TIAPRIDE [Concomitant]

REACTIONS (2)
  - CONJUNCTIVAL HAEMORRHAGE [None]
  - DRUG INTERACTION [None]
